FAERS Safety Report 7248848-2 (Version None)
Quarter: 2011Q1

REPORT INFORMATION
  Report Type: 
  Country: None (occurrence: None)
  Receive Date: 20110128
  Receipt Date: 20100107
  Transmission Date: 20110831
  Serious: Yes (Death)
  Sender: FDA-Public Use
  Company Number: US-BAYER-200920343NA

PATIENT
  Sex: Female
  Weight: 100.68 kg

DRUGS (26)
  1. LABETALOL HCL [Concomitant]
  2. NEPHROCAPS [VIT C,VIT H,B12,B9,B3,PANTOTHEN AC,B6,B2,B1 HCL] [Concomitant]
     Route: 048
  3. INDIUM (111 IN) [Concomitant]
     Indication: WHITE BLOOD CELL SCAN
     Dosage: 380 MCI, ONCE
     Dates: start: 20060524, end: 20060524
  4. TECHNETIUM TC 99M METHYLENE DIPHOSPHONATE [Concomitant]
     Dosage: UNK
     Dates: start: 20080407, end: 20080407
  5. ALLOPURINOL [Concomitant]
     Route: 048
  6. RENAGEL [Concomitant]
  7. ENALAPRIL MALEATE [Concomitant]
  8. PROCRIT [Concomitant]
     Dosage: UNK UNK, ONCE
     Route: 058
     Dates: start: 20030926
  9. CIMETIDINE [Concomitant]
     Route: 048
  10. MAGNEVIST [Suspect]
     Indication: NUCLEAR MAGNETIC RESONANCE IMAGING BRAIN
     Dates: start: 20060817, end: 20060817
  11. PHOSLO [Concomitant]
     Route: 048
  12. AMLODIPINE BESYLATE [Concomitant]
     Route: 048
  13. PROCRIT [Concomitant]
     Dosage: 20000 U, UNK
     Route: 042
     Dates: start: 20040530, end: 20040530
  14. ROCALTROL [Concomitant]
     Dosage: UNK
  15. CONTRAST MEDIA [Concomitant]
     Dosage: 10 ML, ONCE
     Dates: start: 20040529, end: 20040529
  16. MAGNEVIST [Suspect]
     Dates: start: 20060524, end: 20060524
  17. PROTONIX [Concomitant]
     Route: 048
  18. DEMADEX [Concomitant]
  19. PROCRIT [Concomitant]
     Dosage: UNK
     Route: 042
  20. SEROQUEL [Concomitant]
  21. DONNATAL [Concomitant]
  22. CONTRAST MEDIA [Concomitant]
     Dosage: UNK
     Route: 048
     Dates: start: 20060515, end: 20060515
  23. MAGNEVIST [Suspect]
     Indication: ANGIOGRAM
     Dates: start: 20030925, end: 20030925
  24. ATENOLOL [Concomitant]
  25. EPOGEN [Concomitant]
     Dosage: 10000 U, UNK
     Route: 042
  26. QUININE SULFATE [QUININE SULFATE] [Concomitant]
     Dosage: PRE DIALYSIS ON TU, THU, FRI

REACTIONS (27)
  - SKIN FIBROSIS [None]
  - GENERAL PHYSICAL HEALTH DETERIORATION [None]
  - PAIN [None]
  - PARAESTHESIA [None]
  - RASH [None]
  - PRURITUS [None]
  - SKIN HYPERTROPHY [None]
  - HYPOAESTHESIA [None]
  - ANXIETY [None]
  - GAIT DISTURBANCE [None]
  - ERYTHEMA [None]
  - RESPIRATORY ARREST [None]
  - JOINT RANGE OF MOTION DECREASED [None]
  - PNEUMONIA [None]
  - EMOTIONAL DISTRESS [None]
  - OEDEMA PERIPHERAL [None]
  - PAIN IN EXTREMITY [None]
  - INTERSTITIAL LUNG DISEASE [None]
  - SKIN INDURATION [None]
  - JOINT INJURY [None]
  - MOBILITY DECREASED [None]
  - SKIN TIGHTNESS [None]
  - PIGMENTATION DISORDER [None]
  - ASTHENIA [None]
  - MUSCLE ATROPHY [None]
  - NEPHROGENIC SYSTEMIC FIBROSIS [None]
  - MUSCULOSKELETAL STIFFNESS [None]
